FAERS Safety Report 18795241 (Version 1)
Quarter: 2021Q1

REPORT INFORMATION
  Report Type: Spontaneous
  Country: HR (occurrence: HR)
  Receive Date: 20210127
  Receipt Date: 20210127
  Transmission Date: 20210419
  Serious: Yes (Other)
  Sender: FDA-Public Use
  Company Number: HR-PFIZER INC-2021060167

PATIENT
  Age: 52 Year
  Sex: Female

DRUGS (4)
  1. XANAX XR [Suspect]
     Active Substance: ALPRAZOLAM
     Dosage: 3 MG, 1X/DAY
     Route: 048
     Dates: start: 20201230, end: 20201230
  2. CALIXTA [Suspect]
     Active Substance: MIRTAZAPINE
     Dosage: 90 MG, 1X/DAY
     Route: 048
     Dates: start: 20201230, end: 20201230
  3. CIPRALEX [Suspect]
     Active Substance: ESCITALOPRAM OXALATE
     Dosage: 30 MG, 1X/DAY
     Route: 048
     Dates: start: 20201230, end: 20201230
  4. CERSON (NITRAZEPAM) [Suspect]
     Active Substance: NITRAZEPAM
     Dosage: 25 MG, 1X/DAY
     Route: 048
     Dates: start: 20201230, end: 20201230

REACTIONS (4)
  - Suicide attempt [Unknown]
  - Intentional overdose [Unknown]
  - Electrocardiogram QT prolonged [Unknown]
  - Somnolence [Unknown]

NARRATIVE: CASE EVENT DATE: 20201230
